FAERS Safety Report 8431163-9 (Version None)
Quarter: 2012Q2

REPORT INFORMATION
  Report Type: 
  Country: None (occurrence: None)
  Receive Date: 20120612
  Receipt Date: 20120605
  Transmission Date: 20120825
  Serious: Yes (Other)
  Sender: FDA-Public Use
  Company Number: PHEH2011US011571

PATIENT
  Sex: Female
  Weight: 77.098 kg

DRUGS (2)
  1. EXELON [Suspect]
     Dosage: UNK UKN, UNK
  2. EXELON [Suspect]
     Indication: DEMENTIA
     Dosage: UNK
     Route: 062

REACTIONS (8)
  - FALL [None]
  - MYOCLONUS [None]
  - DRUG INEFFECTIVE [None]
  - DISEASE PROGRESSION [None]
  - MUSCLE TWITCHING [None]
  - BALANCE DISORDER [None]
  - MOVEMENT DISORDER [None]
  - INCONTINENCE [None]
